FAERS Safety Report 6867375-5 (Version None)
Quarter: 2010Q3

REPORT INFORMATION
  Report Type: 
  Country: None (occurrence: None)
  Receive Date: 20100722
  Receipt Date: 20100712
  Transmission Date: 20110219
  Serious: Yes (Other)
  Sender: FDA-Public Use
  Company Number: RO-TEVA-241092ISR

PATIENT
  Age: 51 Year
  Sex: Female

DRUGS (6)
  1. METOPROLOL [Suspect]
  2. INDAPAMIDE [Suspect]
  3. INFLIXIMAB [Suspect]
     Dosage: 20 PERFUSIONS OVER THE LAST 3 YEARS
  4. ENALAPRIL MALEATE [Suspect]
  5. LEFLUNOMIDE [Suspect]
     Dosage: 10 MG/DAY
  6. SULFASALAZINE [Suspect]
     Dosage: 2 G/DAY
     Dates: start: 20010101, end: 20050101

REACTIONS (1)
  - LICHENOID KERATOSIS [None]
